FAERS Safety Report 8401093-7 (Version None)
Quarter: 2012Q2

REPORT INFORMATION
  Report Type: 
  Country: None (occurrence: None)
  Receive Date: 20120601
  Receipt Date: 20120529
  Transmission Date: 20120825
  Serious: No
  Sender: FDA-Public Use
  Company Number: US-PFIZER INC-2012129557

PATIENT
  Sex: Female

DRUGS (1)
  1. PRISTIQ [Suspect]
     Indication: ANXIETY
     Dosage: UNK
     Dates: start: 20120501

REACTIONS (8)
  - DECREASED APPETITE [None]
  - IRRITABILITY [None]
  - CRYING [None]
  - NERVOUSNESS [None]
  - INSOMNIA [None]
  - ANXIETY [None]
  - DRUG INEFFECTIVE [None]
  - FATIGUE [None]
